FAERS Safety Report 22238198 (Version 1)
Quarter: 2023Q2

REPORT INFORMATION
  Report Type: Spontaneous
  Country: US (occurrence: US)
  Receive Date: 20230421
  Receipt Date: 20230421
  Transmission Date: 20230722
  Serious: No
  Sender: FDA-Public Use
  Company Number: US-AIMMUNE THERAPEUTICS, INC.-2023AIMT00207

PATIENT

DRUGS (24)
  1. PALFORZIA [Suspect]
     Active Substance: PEANUT
     Indication: Food allergy
     Dosage: IDE (0.5MG-3MG), ONCE
     Route: 048
     Dates: start: 20221114, end: 20221114
  2. PALFORZIA [Suspect]
     Active Substance: PEANUT
     Dosage: 120 MG, 1X/DAY
     Route: 048
     Dates: start: 20230215, end: 20230219
  3. PALFORZIA [Suspect]
     Active Substance: PEANUT
     Dosage: 120 MG, ONCE, LAST DOSE PRIOR EVENTS
     Route: 048
     Dates: start: 202302, end: 202302
  4. PALFORZIA [Suspect]
     Active Substance: PEANUT
     Dosage: 120 MG, 1X/DAY, RE-STARTED AS SPLIT DOSE
     Route: 048
     Dates: start: 20230223, end: 20230228
  5. SINGULAIR [Concomitant]
     Active Substance: MONTELUKAST SODIUM
     Indication: Asthma
     Dosage: 5 MG, SPRING-FALL
  6. SINGULAIR [Concomitant]
     Active Substance: MONTELUKAST SODIUM
     Indication: Rhinitis allergic
  7. SINGULAIR [Concomitant]
     Active Substance: MONTELUKAST SODIUM
     Indication: Seasonal allergy
  8. SINGULAIR [Concomitant]
     Active Substance: MONTELUKAST SODIUM
     Indication: Allergy to animal
  9. ALBUTEROL [Concomitant]
     Active Substance: ALBUTEROL
     Indication: Wheezing
     Dosage: UNK, AS NEEDED
  10. ALBUTEROL [Concomitant]
     Active Substance: ALBUTEROL
     Indication: Asthma
  11. BUDESONIDE [Concomitant]
     Active Substance: BUDESONIDE
     Indication: Wheezing
     Dosage: UNK, AS NEEDED
  12. BUDESONIDE [Concomitant]
     Active Substance: BUDESONIDE
     Indication: Asthma
  13. ZYRTEC [Concomitant]
     Active Substance: CETIRIZINE HYDROCHLORIDE
     Indication: Rhinitis allergic
     Dosage: UNK, 1X/DAY, AT NIGHT
  14. ZYRTEC [Concomitant]
     Active Substance: CETIRIZINE HYDROCHLORIDE
     Indication: Eczema
  15. BENADRYL [Concomitant]
     Active Substance: DIPHENHYDRAMINE HYDROCHLORIDE
     Indication: Pruritus
     Dosage: 12.5 MG, AS NEEDED
  16. BENADRYL [Concomitant]
     Active Substance: DIPHENHYDRAMINE HYDROCHLORIDE
     Indication: Eczema
  17. EPINEPHRINE [Concomitant]
     Active Substance: EPINEPHRINE
     Indication: Food allergy
     Dosage: UNK, AS NEEDED
  18. EPINEPHRINE [Concomitant]
     Active Substance: EPINEPHRINE
     Indication: Food allergy
  19. FLUOCINOLONE [Concomitant]
     Active Substance: FLUOCINOLONE
     Indication: Eczema
     Dosage: FEW TIMES PER WEEK ON SKIN AND SCALP
     Route: 061
  20. FLONASE [Concomitant]
     Active Substance: FLUTICASONE PROPIONATE
     Indication: Rhinitis allergic
     Dosage: UNK, 1X/DAY
     Route: 045
  21. PREDNISONE [Concomitant]
     Active Substance: PREDNISONE
     Indication: Asthma
     Dosage: UNK, AS NEEDED
  22. PREDNISONE [Concomitant]
     Active Substance: PREDNISONE
     Indication: Hypersensitivity
  23. AQUAPHOR [WHITE SOFT PARAFFIN] [Concomitant]
     Indication: Eczema
     Route: 061
  24. MOMETASONE [Concomitant]
     Active Substance: MOMETASONE
     Indication: Eczema

REACTIONS (5)
  - Eczema [Unknown]
  - Erythema [Unknown]
  - Pruritus [Unknown]
  - Concussion [Unknown]
  - Pyrexia [Unknown]

NARRATIVE: CASE EVENT DATE: 20230216
